FAERS Safety Report 12185596 (Version 6)
Quarter: 2016Q3

REPORT INFORMATION
  Report Type: Spontaneous
  Country: US (occurrence: US)
  Receive Date: 20160316
  Receipt Date: 20160816
  Transmission Date: 20161109
  Serious: Yes (Other)
  Sender: FDA-Public Use
  Company Number: US-TEVA-642848USA

PATIENT
  Age: 51 Year
  Sex: Female

DRUGS (2)
  1. ZECUITY [Suspect]
     Active Substance: SUMATRIPTAN SUCCINATE
     Route: 062
     Dates: start: 20160303, end: 20160303
  2. ZECUITY [Suspect]
     Active Substance: SUMATRIPTAN SUCCINATE
     Indication: MIGRAINE
     Route: 062
     Dates: start: 201603, end: 201603

REACTIONS (13)
  - Application site erythema [Not Recovered/Not Resolved]
  - Application site pain [Not Recovered/Not Resolved]
  - Application site paraesthesia [Recovering/Resolving]
  - Chemical injury [Recovered/Resolved with Sequelae]
  - Abasia [Unknown]
  - Application site discolouration [Not Recovered/Not Resolved]
  - Application site burn [Not Recovered/Not Resolved]
  - Product physical issue [Unknown]
  - Hypotonia [Not Recovered/Not Resolved]
  - Application site exfoliation [Not Recovered/Not Resolved]
  - Muscular weakness [Not Recovered/Not Resolved]
  - Burns first degree [Not Recovered/Not Resolved]
  - Pain in extremity [Not Recovered/Not Resolved]

NARRATIVE: CASE EVENT DATE: 2016
